FAERS Safety Report 6867305-6 (Version None)
Quarter: 2010Q3

REPORT INFORMATION
  Report Type: 
  Country: None (occurrence: None)
  Receive Date: 20100722
  Receipt Date: 20100722
  Transmission Date: 20110219
  Serious: Yes (Life-Threatening)
  Sender: FDA-Public Use
  Company Number: None

PATIENT
  Age: 65 Year
  Sex: Female
  Weight: 45.3597 kg

DRUGS (1)
  1. BIAXIN [Suspect]
     Indication: LUNG INFECTION
     Dosage: 500MG 2X A DAY
     Dates: start: 20100710

REACTIONS (9)
  - ABDOMINAL PAIN UPPER [None]
  - DEPRESSION [None]
  - DIARRHOEA [None]
  - DYSGEUSIA [None]
  - DYSPNOEA [None]
  - HEART RATE INCREASED [None]
  - MOOD ALTERED [None]
  - MUSCLE SPASMS [None]
  - SLEEP TERROR [None]
